FAERS Safety Report 5919484-2 (Version None)
Quarter: 2008Q3

REPORT INFORMATION
  Report Type: 
  Country: None (occurrence: None)
  Receive Date: 20080909
  Receipt Date: 20070413
  Transmission Date: 20090109
  Serious: Yes (Hospitalization)
  Sender: FDA-Public Use
  Company Number: 163-20785-07031417 (0)

PATIENT
  Age: 66 Year
  Sex: Female

DRUGS (37)
  1. THALOMID [Suspect]
     Indication: MULTIPLE MYELOMA
     Dosage: 200 MG, 4 IN 1 D, ORAL ; 100 MG, QD, ORAL
     Route: 048
     Dates: start: 20061220, end: 20070216
  2. THALOMID [Suspect]
     Indication: MULTIPLE MYELOMA
     Dosage: 200 MG, 4 IN 1 D, ORAL ; 100 MG, QD, ORAL
     Route: 048
     Dates: start: 20070223, end: 20070226
  3. DEXAMETHASONE [Suspect]
     Indication: MULTIPLE MYELOMA
     Dosage: 40 MG, 10 IN 1 D, ORAL ; 20 MG, X4 DAYS EVERY 21 DAYS, ORAL ; 20 MG, X4 DAYS EVERY 21 DAYS, ORAL
     Route: 048
     Dates: start: 20070109, end: 20070112
  4. DEXAMETHASONE [Suspect]
     Indication: MULTIPLE MYELOMA
     Dosage: 40 MG, 10 IN 1 D, ORAL ; 20 MG, X4 DAYS EVERY 21 DAYS, ORAL ; 20 MG, X4 DAYS EVERY 21 DAYS, ORAL
     Route: 048
     Dates: start: 20070130, end: 20070202
  5. DEXAMETHASONE [Suspect]
     Indication: MULTIPLE MYELOMA
     Dosage: 40 MG, 10 IN 1 D, ORAL ; 20 MG, X4 DAYS EVERY 21 DAYS, ORAL ; 20 MG, X4 DAYS EVERY 21 DAYS, ORAL
     Route: 048
     Dates: start: 20070223, end: 20070226
  6. VELCADE [Suspect]
     Indication: MULTIPLE MYELOMA
     Dosage: SEE IMAGE
     Route: 048
     Dates: start: 20070223, end: 20070226
  7. VELCADE [Suspect]
     Indication: MULTIPLE MYELOMA
     Dosage: SEE IMAGE
     Route: 048
     Dates: start: 20070302, end: 20070305
  8. CISPLATIN [Suspect]
     Indication: MULTIPLE MYELOMA
  9. ADRIAMYCIN PFS [Suspect]
     Indication: MULTIPLE MYELOMA
  10. CYCLOPHOSPHAMIDE [Suspect]
     Indication: MULTIPLE MYELOMA
  11. ETOPOSIDE [Suspect]
     Indication: MULTIPLE MYELOMA
  12. DOXYCYCLINE HYCLATE (DOXYCYCLINE HYCLATE) [Concomitant]
  13. HYDROCORTISONE (HYDROCORTISONE) (10 MILLIGRAM) [Concomitant]
  14. FLORINEF [Concomitant]
  15. MULTI-DAY (MULTIPLE VITAMIN) (MULTIVITAMINS) (TABLETS) [Concomitant]
  16. LEVAQUIN (LEVOFLOXACIN) (500 MILLIGRAM, TABLETS) [Concomitant]
  17. ACYCLOVIR (ACICLOVIR) (TABLETS) [Concomitant]
  18. NEXIUM (ESOMEPRAZOLE) (40 MILLIGRAM, TABLETS) [Concomitant]
  19. AMITRIPTYLINE HYDROCHLORIDE (AMITRIPTYLINE HYDROCHLORIDE) (25 MILLIGRA [Concomitant]
  20. PROCRIT [Concomitant]
  21. LOVENOX (HEPARIN-FRACTION, SODIUM SALT) (100 MILLIGRAM/MILLILITERS, SO [Concomitant]
  22. METOPROLOL TARTRATE (METOPROLOL TARTRATE) (50 MILLIGRAM, TABLETS) [Concomitant]
  23. FOLIC ACID (FOLIC ACID) (1 MILLIGRAM, TABLETS) [Concomitant]
  24. OXYCODONE HYDROCHLORIDE (OXYCODONE HYDROCHLORIDE) (5 MILLIGRAM, TABLET [Concomitant]
  25. OXYCONTIN (OXYCODONE HYDROCHLORIDE) (40 MILLIGRAM, TABLETS) [Concomitant]
  26. MAGNESIUM OXIDE (MAGNESIUM OXIDE) (400 MILLIGRAM, TABLETS) [Concomitant]
  27. POTASSIUM CHLORIDE [Concomitant]
  28. SALAGEN (PILOCARPINE HYDROCHLORIDE) (5 MILLIGRAM, TABLETS) [Concomitant]
  29. REGLAN (METOCLOPRAMIDE) (10 MILLIGRAM, TABLETS) [Concomitant]
  30. DIFLUCAN (FLUCONAZOLE) (200 MILLIGRAM, TABLETS) [Concomitant]
  31. FLAGYL (METRONIDAZLE) (250 MILLIGRAM, TABLETS) [Concomitant]
  32. FLAGYL (METRONIDAZOLE) (250 MILLIGRAM, TABLETS) [Concomitant]
  33. INVANZ (ERTAPENEM SODIUM) (1 GRAM, SOLUTION) [Concomitant]
  34. ZYRTEC (CETIRIZINE HYDROCHLORIDE) (10 MILLIGRAM, TABLETS) [Concomitant]
  35. LYRICA (PREGABALIN) (100 MILLIGRAM, CAPSULES) [Concomitant]
  36. LOMOTIL (LOMOTIL) (TABLETS) [Concomitant]
  37. VANCOMYCIN HCL [Concomitant]

REACTIONS (2)
  - ASTHENIA [None]
  - METABOLIC ACIDOSIS [None]
